FAERS Safety Report 4522012-X (Version None)
Quarter: 2004Q4

REPORT INFORMATION
  Report Type: 
  Country: None (occurrence: None)
  Receive Date: 20041206
  Receipt Date: 20041119
  Transmission Date: 20050328
  Serious: Yes (Hospitalization)
  Sender: FDA-Public Use
  Company Number: 197944

PATIENT
  Age: 39 Year
  Sex: Female
  Weight: 88.4514 kg

DRUGS (10)
  1. AVONEX [Suspect]
     Indication: MULTIPLE SCLEROSIS
     Dosage: 30 UG;QW;IM
     Route: 030
     Dates: start: 20031001, end: 20040601
  2. PREMARIN [Concomitant]
  3. PROPOXYPHENE W/ACETAMINOPHEN [Concomitant]
  4. METHOCARBAMOL [Concomitant]
  5. BISOPROLOL FUMARATE AND HYDROCHLOROTHIAZIDE [Concomitant]
  6. SYNTHROID [Concomitant]
  7. PREVACID [Concomitant]
  8. ZOCOR [Concomitant]
  9. ULTRACET [Concomitant]
  10. ZIAC [Concomitant]

REACTIONS (10)
  - CHOLECYSTITIS [None]
  - CHOLELITHIASIS [None]
  - DYSSTASIA [None]
  - ECONOMIC PROBLEM [None]
  - HYPERTENSION [None]
  - JOINT SWELLING [None]
  - OSTEOMYELITIS [None]
  - POSTOPERATIVE INFECTION [None]
  - STRESS SYMPTOMS [None]
  - SURGERY [None]
